FAERS Safety Report 7351008-8 (Version None)
Quarter: 2011Q1

REPORT INFORMATION
  Report Type: 
  Country: None (occurrence: None)
  Receive Date: 20110314
  Receipt Date: 20110310
  Transmission Date: 20110831
  Serious: Yes (Death)
  Sender: FDA-Public Use
  Company Number: PHHY2011JP19299

PATIENT
  Age: 69 Year
  Sex: Female

DRUGS (6)
  1. CARBOPLATIN [Suspect]
     Dosage: 133 MG, DAILY
     Route: 033
     Dates: start: 20101216, end: 20101216
  2. CARBOPLATIN [Suspect]
     Indication: MALIGNANT PERITONEAL NEOPLASM
     Dosage: 133 MG, DAILY
     Route: 033
     Dates: start: 20101125, end: 20101125
  3. PACLITAXEL [Suspect]
     Dosage: 575 MG, DAILY
     Route: 042
     Dates: start: 20101209, end: 20101209
  4. PACLITAXEL [Suspect]
     Dosage: 575 MG, DAILY
     Route: 042
     Dates: start: 20101202, end: 20101202
  5. PACLITAXEL [Suspect]
     Dosage: 575 MG, DAILY
     Route: 042
     Dates: start: 20101216, end: 20101216
  6. PACLITAXEL [Suspect]
     Indication: MALIGNANT PERITONEAL NEOPLASM
     Dosage: 575 MG, DAILY
     Route: 042
     Dates: start: 20101125, end: 20101125

REACTIONS (1)
  - INTERSTITIAL LUNG DISEASE [None]
